FAERS Safety Report 8044222-X (Version None)
Quarter: 2012Q1

REPORT INFORMATION
  Report Type: 
  Country: None (occurrence: None)
  Receive Date: 20120113
  Receipt Date: 20120109
  Transmission Date: 20120608
  Serious: Yes (Other)
  Sender: FDA-Public Use
  Company Number: US-SANOFI-AVENTIS-2010SA024513

PATIENT
  Age: 40 Year
  Sex: Female
  Weight: 84 kg

DRUGS (22)
  1. LANTUS [Suspect]
     Indication: TYPE 2 DIABETES MELLITUS
     Dosage: DOSE:58 UNIT(S)
     Route: 058
     Dates: start: 20100301, end: 20100501
  2. LANTUS [Suspect]
     Dosage: HAS INCREASED DOSE PIRO TO AUG-2009 AND LAST MONTH INCREASED FROM 50-53
     Route: 058
     Dates: end: 20100301
  3. OPTICLICK [Suspect]
     Indication: TYPE 2 DIABETES MELLITUS
  4. VALSARTAN [Concomitant]
     Route: 065
  5. ANTIBIOTIC [Concomitant]
  6. LANTUS [Suspect]
     Dosage: DOSE:53 UNIT(S)
     Route: 058
  7. LANTUS [Suspect]
     Dosage: DOSE:54 UNIT(S)
     Route: 058
  8. DEPAKOTE [Concomitant]
     Route: 065
  9. METOPROLOL [Concomitant]
     Route: 065
  10. PROGRAF [Concomitant]
     Dosage: TAKES 3 TWICE DAILY
  11. PLAVIX [Concomitant]
     Route: 065
  12. PROCARDIA XL [Concomitant]
     Route: 065
  13. MULTI-VITAMINS [Concomitant]
     Route: 065
  14. SOLOSTAR [Suspect]
     Indication: TYPE 2 DIABETES MELLITUS
  15. NOVOLOG [Concomitant]
     Dates: start: 20090801
  16. NOVOLOG [Concomitant]
     Dosage: 8-12 UNITS BEFORE MEALS
     Route: 065
  17. SIMVASTATIN [Concomitant]
     Route: 065
  18. LANTUS [Suspect]
     Dosage: DOSE:55 UNIT(S)
     Route: 058
     Dates: start: 20100501
  19. LASIX [Concomitant]
     Route: 065
  20. ASPIRIN [Concomitant]
     Route: 065
  21. MYCOPHENOLATE MOFETIL (CELLCEPT) [Concomitant]
     Route: 065
  22. CELEXA [Concomitant]
     Route: 065

REACTIONS (5)
  - BLOOD GLUCOSE DECREASED [None]
  - MATERNAL EXPOSURE DURING PREGNANCY [None]
  - NEPHROPATHY [None]
  - BLOOD GLUCOSE FLUCTUATION [None]
  - VIRAL INFECTION [None]
